FAERS Safety Report 13331040 (Version 1)
Quarter: 2017Q1

REPORT INFORMATION
  Report Type: Other
  Country: US (occurrence: US)
  Receive Date: 20170313
  Receipt Date: 20170313
  Transmission Date: 20170428
  Serious: No
  Sender: FDA-Public Use
  Company Number: US-COL_22892_2016

PATIENT
  Sex: Male

DRUGS (1)
  1. PERIOGARD [Suspect]
     Active Substance: CHLORHEXIDINE GLUCONATE
     Indication: PRODUCT USED FOR UNKNOWN INDICATION
     Dosage: HALF CAP EACH USE/BID/
     Route: 048
     Dates: start: 201604, end: 20160502

REACTIONS (5)
  - Nausea [Recovering/Resolving]
  - Flatulence [Recovering/Resolving]
  - Decreased appetite [Recovering/Resolving]
  - Abdominal discomfort [Recovering/Resolving]
  - Insomnia [Recovering/Resolving]

NARRATIVE: CASE EVENT DATE: 2016
